FAERS Safety Report 4910516-7 (Version None)
Quarter: 2006Q1

REPORT INFORMATION
  Report Type: 
  Country: None (occurrence: None)
  Receive Date: 20060209
  Receipt Date: 20060126
  Transmission Date: 20060701
  Serious: Yes (Other)
  Sender: FDA-Public Use
  Company Number: 13341

PATIENT
  Age: 59 Year
  Sex: Female
  Weight: 53 kg

DRUGS (4)
  1. PACLITAXEL [Suspect]
     Indication: NON-SMALL CELL LUNG CANCER
     Dosage: 300 MG DAILY IV
     Route: 042
     Dates: start: 20060126, end: 20060126
  2. FORTECORTIN /00016001/ [Concomitant]
  3. TAVEGIL /00137201/ [Concomitant]
  4. SOSTRIL [Concomitant]

REACTIONS (7)
  - BACK PAIN [None]
  - INFUSION RELATED REACTION [None]
  - OXYGEN SATURATION DECREASED [None]
  - PAIN IN EXTREMITY [None]
  - PELVIC PAIN [None]
  - RESPIRATORY RATE INCREASED [None]
  - VOMITING [None]
